FAERS Safety Report 4371444-1 (Version None)
Quarter: 2004Q2

REPORT INFORMATION
  Report Type: 
  Country: None (occurrence: None)
  Receive Date: 20040602
  Receipt Date: 20050520
  Transmission Date: 20050107
  Serious: Yes (Hospitalization)
  Sender: FDA-Public Use
  Company Number: US-JNJFOC-20040504752

PATIENT
  Age: 76 Year
  Sex: Male

DRUGS (14)
  1. INFLIXIMAB (INFLIXIMAB, RECOMBINANT) LYOPHILIZED POWDER [Suspect]
     Indication: RHEUMATOID ARTHRITIS
     Dosage: INTRAVENOUS
     Route: 042
     Dates: start: 20000329
  2. METHOTREXATE [Concomitant]
  3. ASPIRIN [Concomitant]
  4. PROTONIX [Concomitant]
  5. DIOVAN [Concomitant]
  6. ZOCOR [Concomitant]
  7. CARDURA [Concomitant]
  8. ELAVIL [Concomitant]
  9. LORTAB [Concomitant]
  10. IRON SUPPLEMENT) [Concomitant]
  11. B-12 (CYANOCOBALAMIN) [Concomitant]
  12. FOLIC ACID [Concomitant]
  13. POTASSIUM [Concomitant]
  14. EYE DROPS (ALL OTHER THERAPEUTIC PRODUCTS) [Concomitant]

REACTIONS (4)
  - ACQUIRED DIAPHRAGMATIC EVENTRATION [None]
  - ALCOHOLISM [None]
  - HAEMANGIOMA OF LIVER [None]
  - PANCREATITIS ACUTE [None]
